FAERS Safety Report 6210352-8 (Version None)
Quarter: 2009Q2

REPORT INFORMATION
  Report Type: 
  Country: None (occurrence: None)
  Receive Date: 20090527
  Receipt Date: 20090518
  Transmission Date: 20091009
  Serious: Yes (Hospitalization)
  Sender: FDA-Public Use
  Company Number: 2009SP009255

PATIENT
  Age: 65 Year
  Sex: Male

DRUGS (2)
  1. INTEGRILIN [Suspect]
     Indication: DRUG USE FOR UNKNOWN INDICATION
  2. UNFRACTIONATED HEPARIN [Concomitant]

REACTIONS (9)
  - ACUTE CORONARY SYNDROME [None]
  - BRADYCARDIA [None]
  - DEEP VEIN THROMBOSIS [None]
  - DIASTOLIC DYSFUNCTION [None]
  - EJECTION FRACTION DECREASED [None]
  - ELECTROMECHANICAL DISSOCIATION [None]
  - PULMONARY HYPERTENSION [None]
  - THROMBOCYTOPENIA [None]
  - THROMBOPHLEBITIS SUPERFICIAL [None]
